FAERS Safety Report 6648988-2 (Version None)
Quarter: 2010Q1

REPORT INFORMATION
  Report Type: 
  Country: None (occurrence: None)
  Receive Date: 20100324
  Receipt Date: 20100322
  Transmission Date: 20100710
  Serious: Yes (Other)
  Sender: FDA-Public Use
  Company Number: GXKR2010DE03299

PATIENT
  Age: 52 Year
  Sex: Male

DRUGS (2)
  1. MTX HEXAL (NGX) [Suspect]
     Indication: MUSCULOSKELETAL PAIN
     Dosage: 2.5 MG, QW
     Route: 048
  2. MTX HEXAL (NGX) [Suspect]
     Dosage: 7.5 MG/ML, QW

REACTIONS (1)
  - PANCREATITIS [None]
